FAERS Safety Report 24675606 (Version 1)
Quarter: 2024Q4

REPORT INFORMATION
  Report Type: Spontaneous
  Country: JP (occurrence: JP)
  Receive Date: 20241128
  Receipt Date: 20241128
  Transmission Date: 20250115
  Serious: Yes (Death, Hospitalization, Other)
  Sender: BRISTOL-MYERS SQUIBB COMPANY
  Company Number: JP-ONO-2024JP024218

PATIENT
  Age: 65 Year
  Sex: Male
  Weight: 61 kg

DRUGS (7)
  1. OPDIVO [Suspect]
     Active Substance: NIVOLUMAB
     Indication: Head and neck cancer
     Dosage: 240 MG
     Route: 041
     Dates: start: 20240426, end: 20240625
  2. OXYCODONE NX [Concomitant]
     Indication: Product used for unknown indication
     Dosage: UNK
     Route: 048
     Dates: end: 20240709
  3. MAGNESIUM OXIDE [Concomitant]
     Active Substance: MAGNESIUM OXIDE
     Indication: Product used for unknown indication
     Dosage: UNK
     Route: 048
     Dates: end: 20240709
  4. CALONAL [Concomitant]
     Active Substance: ACETAMINOPHEN
     Indication: Product used for unknown indication
     Dosage: UNK
     Route: 048
     Dates: end: 20240709
  5. ENEVO [Concomitant]
     Indication: Product used for unknown indication
     Dosage: UNK
     Route: 048
     Dates: end: 20240709
  6. NIFEDIPINE [Concomitant]
     Active Substance: NIFEDIPINE
     Indication: Product used for unknown indication
     Dosage: UNK
     Route: 048
     Dates: end: 20240709
  7. RIKKUNSHITO [ATRACTYLODES LANCEA RHIZOME;CITRUS X AURANTIUM PEEL;GLYCY [Concomitant]
     Route: 048
     Dates: end: 20240709

REACTIONS (1)
  - Immune-mediated lung disease [Fatal]

NARRATIVE: CASE EVENT DATE: 20240709
